FAERS Safety Report 21580736 (Version 1)
Quarter: 2022Q4

REPORT INFORMATION
  Report Type: Report from Study
  Country: GR (occurrence: GR)
  Receive Date: 20221111
  Receipt Date: 20221111
  Transmission Date: 20230112
  Serious: Yes (Other)
  Sender: FDA-Public Use
  Company Number: GR-ABBVIE-4195672

PATIENT

DRUGS (3)
  1. VENETOCLAX [Suspect]
     Active Substance: VENETOCLAX
     Indication: Acute myeloid leukaemia
     Route: 048
     Dates: start: 202206
  2. VENETOCLAX [Suspect]
     Active Substance: VENETOCLAX
     Indication: Acute myeloid leukaemia
     Dosage: MAXIMUM DOSE THAT THE PATIENT WAS ABLE TO TAKE IS 400MG.
     Route: 048
  3. NOXAFIL [Concomitant]
     Active Substance: POSACONAZOLE
     Indication: Fungal infection

REACTIONS (3)
  - Red blood cell transfusion [Unknown]
  - Therapeutic product effect incomplete [Unknown]
  - Platelet transfusion [Unknown]
